FAERS Safety Report 26007349 (Version 1)
Quarter: 2025Q4

REPORT INFORMATION
  Report Type: Spontaneous
  Country: PK (occurrence: PK)
  Receive Date: 20251106
  Receipt Date: 20251106
  Transmission Date: 20260117
  Serious: Yes (Other)
  Sender: INSUD PHARMA
  Company Number: PK-INSUD PHARMA-2510PK09134

PATIENT

DRUGS (1)
  1. NUVESSA [Suspect]
     Active Substance: METRONIDAZOLE
     Indication: Hepatic amoebiasis
     Dosage: 2.4 GRAM, QD
     Route: 065

REACTIONS (9)
  - Neurotoxicity [Recovered/Resolved]
  - Nervous system disorder [Recovered/Resolved]
  - Cerebellar syndrome [Recovered/Resolved]
  - Cerebellar ataxia [Recovered/Resolved]
  - Dysarthria [Recovered/Resolved]
  - Disorganised speech [Recovered/Resolved]
  - Gait disturbance [Recovered/Resolved]
  - Balance disorder [Recovered/Resolved]
  - Posture abnormal [Recovered/Resolved]
